FAERS Safety Report 4598968-6 (Version None)
Quarter: 2005Q1

REPORT INFORMATION
  Report Type: 
  Country: None (occurrence: None)
  Receive Date: 20050302
  Receipt Date: 20050211
  Transmission Date: 20050727
  Serious: Yes (Hospitalization)
  Sender: FDA-Public Use
  Company Number: PHNU2004DE02948

PATIENT
  Age: 60 Year
  Sex: Female
  Weight: 170 kg

DRUGS (1)
  1. BACLOFEN [Suspect]
     Indication: MUSCLE SPASTICITY
     Dosage: UNKNOWN; INTRATHECAL (SEE IMAGE)
     Route: 037

REACTIONS (4)
  - APNOEA [None]
  - COMA [None]
  - DEVICE FAILURE [None]
  - HYPOTENSION [None]
